FAERS Safety Report 10010325 (Version 1)
Quarter: 2014Q1

REPORT INFORMATION
  Report Type: Report from Study
  Country: MX (occurrence: MX)
  Receive Date: 20140314
  Receipt Date: 20140314
  Transmission Date: 20141002
  Serious: Yes (Other)
  Sender: FDA-Public Use
  Company Number: MX-ROCHE-1361414

PATIENT
  Age: 45 Year
  Sex: Female
  Weight: 59 kg

DRUGS (2)
  1. AVASTIN [Suspect]
     Indication: BREAST CANCER
     Route: 065
  2. DOCETAXEL [Suspect]
     Indication: BREAST CANCER
     Route: 065

REACTIONS (2)
  - Disease progression [Unknown]
  - Disease progression [Unknown]
